FAERS Safety Report 7314939-0 (Version None)
Quarter: 2011Q1

REPORT INFORMATION
  Report Type: 
  Country: None (occurrence: None)
  Receive Date: 20110225
  Receipt Date: 20100211
  Transmission Date: 20110831
  Serious: No
  Sender: FDA-Public Use
  Company Number: US-MYLANLABS-2010S1002246

PATIENT
  Age: 46 Year
  Sex: Female

DRUGS (6)
  1. LORAZEPAM [Concomitant]
     Indication: ANXIETY
     Route: 048
  2. AMBIEN [Concomitant]
     Indication: INSOMNIA
     Route: 048
  3. AMNESTEEM [Suspect]
     Indication: ACNE CYSTIC
     Route: 048
     Dates: start: 20091001, end: 20091201
  4. ACCUPRIL [Concomitant]
     Indication: HYPERTENSION
     Route: 048
  5. ZIAC [Concomitant]
     Indication: HYPERTENSION
     Route: 048
  6. ALCOHOL [Suspect]
     Route: 048
     Dates: start: 20090927, end: 20090927

REACTIONS (1)
  - GAMMA-GLUTAMYLTRANSFERASE INCREASED [None]
